FAERS Safety Report 23347017 (Version 2)
Quarter: 2024Q1

REPORT INFORMATION
  Report Type: Spontaneous
  Country: GB (occurrence: GB)
  Receive Date: 20231228
  Receipt Date: 20240108
  Transmission Date: 20240410
  Serious: Yes (Hospitalization, Other)
  Sender: FDA-Public Use
  Company Number: GB-MYLANLABS-2023M1137858

PATIENT
  Sex: Female

DRUGS (6)
  1. LAMOTRIGINE [Interacting]
     Active Substance: LAMOTRIGINE
     Indication: Behaviour disorder
     Dosage: UNK; INITIAL DOSE
     Route: 065
  2. LAMOTRIGINE [Interacting]
     Active Substance: LAMOTRIGINE
     Dosage: UNK; INCREASED DOSE
     Route: 065
  3. ATOMOXETINE [Interacting]
     Active Substance: ATOMOXETINE
     Indication: Attention deficit hyperactivity disorder
     Dosage: UNK
     Route: 065
  4. METHYLPHENIDATE [Suspect]
     Active Substance: METHYLPHENIDATE
     Indication: Attention deficit hyperactivity disorder
     Dosage: UNK
     Route: 065
  5. RISPERIDONE [Suspect]
     Active Substance: RISPERIDONE
     Indication: Attention deficit hyperactivity disorder
     Dosage: UNK
     Route: 065
  6. MELATONIN [Suspect]
     Active Substance: MELATONIN
     Indication: Behaviour disorder
     Dosage: UNK
     Route: 065

REACTIONS (8)
  - Drug-induced liver injury [Recovering/Resolving]
  - Hyperammonaemia [Unknown]
  - Drug interaction [Recovering/Resolving]
  - Coagulopathy [Recovering/Resolving]
  - Hepatic encephalopathy [Recovering/Resolving]
  - Acute hepatic failure [Recovering/Resolving]
  - Hypertension [Recovering/Resolving]
  - Off label use [Recovering/Resolving]
